FAERS Safety Report 14980409 (Version 4)
Quarter: 2018Q3

REPORT INFORMATION
  Report Type: Report from Study
  Country: PL (occurrence: PL)
  Receive Date: 20180606
  Receipt Date: 20180731
  Transmission Date: 20181010
  Serious: Yes (Other)
  Sender: FDA-Public Use
  Company Number: PL-CHIESI USA INC.-PL-2018CHI000143

PATIENT

DRUGS (6)
  1. AMPICILLINUM                       /00000501/ [Concomitant]
     Indication: PRODUCT USED FOR UNKNOWN INDICATION
     Dosage: 140 MG, QD
     Route: 042
     Dates: start: 20180514, end: 20180518
  2. PEYONA [Concomitant]
     Indication: INFANTILE APNOEA
     Dosage: 28 MG, QD
     Route: 042
     Dates: start: 20180514, end: 20180712
  3. PERFALGAN [Concomitant]
     Active Substance: ACETAMINOPHEN
     Indication: PRODUCT USED FOR UNKNOWN INDICATION
     Dosage: 26 MG, QD
     Route: 042
     Dates: start: 20180514, end: 20180528
  4. CUROSURF [Suspect]
     Active Substance: PORACTANT ALFA
     Indication: NEONATAL RESPIRATORY DISTRESS SYNDROME
     Dosage: 3 ML, SINGLE
     Route: 039
     Dates: start: 20180515, end: 20180515
  5. MORPHINE [Concomitant]
     Active Substance: MORPHINE
     Indication: PRODUCT USED FOR UNKNOWN INDICATION
     Dosage: UNK
     Route: 001
     Dates: start: 20180515, end: 20180515
  6. GENTAMYCINUM [Concomitant]
     Indication: PRODUCT USED FOR UNKNOWN INDICATION
     Dosage: 5.5 MG, EVERY 36 HOURS
     Route: 042
     Dates: start: 20180514, end: 20180520

REACTIONS (3)
  - Bradycardia neonatal [Recovered/Resolved]
  - Neonatal hypoxia [Recovered/Resolved]
  - Infantile apnoea [Recovered/Resolved]

NARRATIVE: CASE EVENT DATE: 20180515
